FAERS Safety Report 9611956 (Version 1)
Quarter: 2013Q4

REPORT INFORMATION
  Report Type: Spontaneous
  Country: BR (occurrence: BR)
  Receive Date: 20131010
  Receipt Date: 20131010
  Transmission Date: 20140711
  Serious: Yes (Hospitalization, Other)
  Sender: FDA-Public Use
  Company Number: BR-SA-2013SA098700

PATIENT
  Age: 78 Year
  Sex: Female
  Weight: 80 kg

DRUGS (16)
  1. LANTUS [Suspect]
     Indication: TYPE 2 DIABETES MELLITUS
     Dosage: CARTRIDGE
     Route: 058
  2. CLIKSTAR [Concomitant]
  3. OMEPRAZOLE [Concomitant]
     Indication: GASTRIC DISORDER
     Route: 048
  4. OMEGA 3 [Concomitant]
     Indication: MEMORY IMPAIRMENT
     Route: 048
  5. DEPURA [Concomitant]
     Route: 048
  6. OSTEONUTRI [Concomitant]
     Route: 048
  7. MONOCORDIL [Concomitant]
     Indication: CARDIAC DISORDER
     Route: 048
  8. CILOSTAZOL [Concomitant]
     Route: 048
  9. PURAN T4 [Concomitant]
     Indication: THYROID DISORDER
     Route: 048
  10. ROXFLAN [Concomitant]
     Route: 048
  11. DIOVANE [Concomitant]
     Indication: HYPERTENSION
     Route: 048
  12. CRESTOR [Concomitant]
     Indication: BLOOD CHOLESTEROL
     Route: 048
  13. LASIX [Concomitant]
     Indication: HYPERTENSION
     Route: 048
  14. AAS [Concomitant]
     Indication: ANTICOAGULANT THERAPY
     Route: 048
  15. TRAYENTA [Concomitant]
     Indication: DIABETES MELLITUS
     Route: 048
  16. HUMALOG [Concomitant]
     Indication: TYPE 2 DIABETES MELLITUS
     Route: 058

REACTIONS (2)
  - Chest pain [Recovered/Resolved]
  - Arterial stenosis [Recovered/Resolved]
